FAERS Safety Report 23618244 (Version 1)
Quarter: 2024Q1

REPORT INFORMATION
  Report Type: Spontaneous
  Country: US (occurrence: US)
  Receive Date: 20240311
  Receipt Date: 20240311
  Transmission Date: 20240410
  Serious: Yes (Hospitalization)
  Sender: FDA-Public Use
  Company Number: US-BRISTOL-MYERS SQUIBB COMPANY-2024-037654

PATIENT
  Age: 82 Year
  Sex: Female
  Weight: 60.32 kg

DRUGS (1)
  1. POMALYST [Suspect]
     Active Substance: POMALIDOMIDE
     Indication: Plasma cell myeloma
     Dosage: FREQUENCY: DAILY X 14 DAYS ON AND 7 DAYS OFF
     Route: 048
     Dates: start: 20231108

REACTIONS (2)
  - COVID-19 [Recovered/Resolved]
  - Off label use [Unknown]
